FAERS Safety Report 14546804 (Version 2)
Quarter: 2018Q1

REPORT INFORMATION
  Report Type: Spontaneous
  Country: US (occurrence: US)
  Receive Date: 20180219
  Receipt Date: 20180227
  Transmission Date: 20180509
  Serious: Yes (Other)
  Sender: FDA-Public Use
  Company Number: US-PFIZER INC-2018069702

PATIENT
  Age: 64 Year
  Sex: Male

DRUGS (27)
  1. CISAPRIDE [Suspect]
     Active Substance: CISAPRIDE
     Dosage: 40 MG, 4X/DAY
     Dates: start: 19940116
  2. CISAPRIDE [Suspect]
     Active Substance: CISAPRIDE
     Dosage: 20 MG, 4X/DAY
     Dates: start: 19940118
  3. CISAPRIDE [Suspect]
     Active Substance: CISAPRIDE
     Dosage: 40 MG, 4X/DAY
     Dates: start: 19940116
  4. CISAPRIDE [Suspect]
     Active Substance: CISAPRIDE
     Dosage: 5 MG, 4X/DAY
     Dates: start: 19940207
  5. ERYTHROMYCIN. [Interacting]
     Active Substance: ERYTHROMYCIN
     Indication: DIABETIC GASTROPARESIS
     Dosage: UNK
  6. ERYTHROMYCIN. [Interacting]
     Active Substance: ERYTHROMYCIN
     Dosage: 2 G, DAILY (CONTINUOUS INFUSION FOR THE FIRST 24 HOURS)
     Route: 042
  7. LISINOPRIL. [Concomitant]
     Active Substance: LISINOPRIL
     Indication: HYPERTENSION
     Dosage: 10 MG, DAILY
  8. CLONIDINE. [Concomitant]
     Active Substance: CLONIDINE
     Dosage: 0.1 MG, DAILY
  9. ASPIRIN (E.C.) [Concomitant]
     Active Substance: ASPIRIN
     Dosage: UNK, (OCCASIONALLY)
  10. CISAPRIDE [Suspect]
     Active Substance: CISAPRIDE
     Dosage: 10 MG, 4X/DAY
     Dates: start: 19940112
  11. CISAPRIDE [Suspect]
     Active Substance: CISAPRIDE
     Dosage: 30 MG, 4X/DAY
     Dates: start: 19940115
  12. METOCLOPRAMIDE. [Concomitant]
     Active Substance: METOCLOPRAMIDE
     Indication: DIABETIC GASTROPARESIS
     Dosage: UNK, (DURING THE INITIAL 2 DAYS OF HIS HOSPITALIZATION)
     Route: 048
  13. CISAPRIDE [Suspect]
     Active Substance: CISAPRIDE
     Dosage: 160 MG, DAILY (ESCALATED FROM 30 TO 160 MG DAILY) (HIGH DOSE)
  14. CISAPRIDE [Suspect]
     Active Substance: CISAPRIDE
     Dosage: 10 MG, 4X/DAY
     Dates: start: 19940121
  15. CISAPRIDE [Suspect]
     Active Substance: CISAPRIDE
     Dosage: 5 MG, 4X/DAY
     Dates: start: 19940124
  16. ERYTHROMYCIN. [Interacting]
     Active Substance: ERYTHROMYCIN
     Dosage: 100 MG, 4X/DAY (EVERY 6 HOURS THE SECOND DAY)
     Route: 042
  17. ERYTHROMYCIN. [Interacting]
     Active Substance: ERYTHROMYCIN
     Dosage: UNK
     Route: 048
  18. NPH INSULIN [Concomitant]
     Active Substance: INSULIN BEEF
     Indication: DIABETES MELLITUS
     Dosage: UNK
  19. CISAPRIDE [Suspect]
     Active Substance: CISAPRIDE
     Dosage: 20 MG, 4X/DAY
     Dates: start: 19940114
  20. CISAPRIDE [Suspect]
     Active Substance: CISAPRIDE
     Dosage: 20 MG, 4X/DAY
     Dates: start: 19940120
  21. CISAPRIDE [Suspect]
     Active Substance: CISAPRIDE
     Dosage: UNK
     Route: 048
  22. INSULIN [Concomitant]
     Active Substance: INSULIN NOS
     Indication: DIABETES MELLITUS
     Dosage: UNK
  23. CISAPRIDE [Suspect]
     Active Substance: CISAPRIDE
     Dosage: 10 MG,( EVERY 8 HOURS)
  24. CISAPRIDE [Suspect]
     Active Substance: CISAPRIDE
     Dosage: 5 MG, 4X/DAY
     Dates: start: 19940123
  25. CISAPRIDE [Suspect]
     Active Substance: CISAPRIDE
     Indication: DIABETIC GASTROPARESIS
     Dosage: 30 MG, DAILY
  26. LEVOTHYROXINE. [Concomitant]
     Active Substance: LEVOTHYROXINE
     Dosage: 0.15 MG, DAILY
  27. FUROSEMIDE. [Concomitant]
     Active Substance: FUROSEMIDE
     Indication: HYPERTENSION
     Dosage: 20 MG, DAILY

REACTIONS (3)
  - Syncope [Recovered/Resolved]
  - Electrocardiogram QT prolonged [Recovered/Resolved]
  - Ventricular tachycardia [Recovered/Resolved]
